FAERS Safety Report 10622588 (Version 3)
Quarter: 2015Q1

REPORT INFORMATION
  Report Type: Spontaneous
  Country: DE (occurrence: DE)
  Receive Date: 20141203
  Receipt Date: 20150203
  Transmission Date: 20150720
  Serious: Yes (Other)
  Sender: FDA-Public Use
  Company Number: DE-BRISTOL-MYERS SQUIBB COMPANY-21665534

PATIENT
  Age: 73 Year
  Sex: Female
  Weight: 60 kg

DRUGS (2)
  1. ZELBORAF [Concomitant]
     Active Substance: VEMURAFENIB
     Indication: MALIGNANT MELANOMA
     Dosage: 960 MG, UNK
     Route: 065
     Dates: start: 201205, end: 201303
  2. YERVOY [Suspect]
     Active Substance: IPILIMUMAB
     Indication: MALIGNANT MELANOMA
     Dosage: 3 MG/KG, UNK
     Route: 065
     Dates: start: 20130118

REACTIONS (5)
  - Blepharospasm [Not Recovered/Not Resolved]
  - Diarrhoea [Unknown]
  - Cataract [Not Recovered/Not Resolved]
  - Eyelid ptosis [Not Recovered/Not Resolved]
  - Myasthenic syndrome [Unknown]

NARRATIVE: CASE EVENT DATE: 201311
